FAERS Safety Report 6639717-7 (Version None)
Quarter: 2010Q1

REPORT INFORMATION
  Report Type: 
  Country: None (occurrence: None)
  Receive Date: 20100318
  Receipt Date: 20100305
  Transmission Date: 20100710
  Serious: Yes (Other)
  Sender: FDA-Public Use
  Company Number: PHEH2006US01242

PATIENT

DRUGS (18)
  1. ZOMETA [Suspect]
     Indication: BREAST CANCER METASTATIC
     Dosage: 4 MG, UNK
     Dates: start: 20020801, end: 20051001
  2. FEMARA [Concomitant]
     Indication: BREAST CANCER METASTATIC
     Dosage: UNK
     Dates: start: 20020801
  3. ZELNORM                                 /USA/ [Concomitant]
     Indication: IRRITABLE BOWEL SYNDROME
  4. CELEXA [Concomitant]
  5. SYNTHROID [Concomitant]
  6. DOXYCYCLINE [Concomitant]
  7. ZYRTEC [Concomitant]
  8. SINGULAIR [Concomitant]
  9. DIFLUCAN [Concomitant]
  10. CONCERTA [Concomitant]
  11. FASLODEX [Concomitant]
     Dosage: 5 ML, QMO
     Route: 030
  12. BEVACIZUMAB [Concomitant]
  13. QVAR 40 [Concomitant]
  14. NASACORT [Concomitant]
  15. PAXIL [Concomitant]
  16. MARINOL [Concomitant]
  17. MARIJUANA [Concomitant]
  18. CORTISONE [Concomitant]

REACTIONS (17)
  - ABDOMINAL PAIN UPPER [None]
  - BONE DISORDER [None]
  - BONE LESION [None]
  - BRONCHITIS CHRONIC [None]
  - CONSTIPATION [None]
  - DYSPEPSIA [None]
  - HIATUS HERNIA [None]
  - INTERVERTEBRAL DISC PROTRUSION [None]
  - JAW OPERATION [None]
  - KNEE OPERATION [None]
  - MENISCUS REMOVAL [None]
  - METASTASES TO LIVER [None]
  - METASTASES TO SPINE [None]
  - METASTASES TO THORAX [None]
  - OSTEONECROSIS [None]
  - PAIN [None]
  - VASCULAR ANOMALY [None]
